FAERS Safety Report 11397124 (Version 2)
Quarter: 2015Q3

REPORT INFORMATION
  Report Type: Spontaneous
  Country: US (occurrence: US)
  Receive Date: 20150819
  Receipt Date: 20150825
  Transmission Date: 20151125
  Serious: Yes (Other)
  Sender: FDA-Public Use
  Company Number: US-PFIZER INC-2015275336

PATIENT
  Age: 52 Year
  Sex: Female
  Weight: 100 kg

DRUGS (10)
  1. LOVASTATIN. [Concomitant]
     Active Substance: LOVASTATIN
     Indication: BLOOD CHOLESTEROL INCREASED
     Dosage: 40 MG, 1X/DAY
     Route: 048
  2. KLONOPIN [Concomitant]
     Active Substance: CLONAZEPAM
     Dosage: 1 MG IN THE MORNING AND 0.5 MG AT NIGHT
     Route: 048
  3. PREMARIN [Suspect]
     Active Substance: ESTROGENS, CONJUGATED
     Indication: HORMONE REPLACEMENT THERAPY
     Dosage: 0.625 MG, DAILY
     Route: 048
     Dates: start: 200703
  4. CYMBALTA [Concomitant]
     Active Substance: DULOXETINE HYDROCHLORIDE
     Indication: NERVOUS SYSTEM DISORDER
     Dosage: 60 MG, 1X/DAY
     Route: 048
  5. ENALAPRIL [Concomitant]
     Active Substance: ENALAPRIL
     Dosage: 5 MG, UNK
  6. KLONOPIN [Concomitant]
     Active Substance: CLONAZEPAM
     Indication: NERVOUS SYSTEM DISORDER
     Dosage: 0.5 MG, 3X/DAY
     Route: 048
     Dates: start: 2007
  7. ASPIRIN. [Concomitant]
     Active Substance: ASPIRIN
     Indication: ELDERLY
     Dosage: 81 MG, DAILY
     Route: 048
  8. ENALAPRIL [Concomitant]
     Active Substance: ENALAPRIL
     Indication: HYPERTENSION
     Dosage: 20 MG, UNK
  9. PROPRANOLOL [Concomitant]
     Active Substance: PROPRANOLOL\PROPRANOLOL HYDROCHLORIDE
     Indication: THERAPEUTIC PROCEDURE
     Dosage: 20 MG, 2X/DAY
     Route: 048
  10. ENALAPRIL [Concomitant]
     Active Substance: ENALAPRIL
     Dosage: 10 MG, UNK

REACTIONS (8)
  - Condition aggravated [Unknown]
  - Hypertension [Unknown]
  - Rotator cuff syndrome [Unknown]
  - Somnolence [Unknown]
  - Psychomotor hyperactivity [Unknown]
  - Joint injury [Unknown]
  - Asthenia [Unknown]
  - Sluggishness [Unknown]

NARRATIVE: CASE EVENT DATE: 2011
